FAERS Safety Report 8081214-9 (Version None)
Quarter: 2012Q1

REPORT INFORMATION
  Report Type: 
  Country: None (occurrence: None)
  Receive Date: 20120130
  Receipt Date: 20120124
  Transmission Date: 20120608
  Serious: Yes (Other)
  Sender: FDA-Public Use
  Company Number: US-PFIZER INC-2011301257

PATIENT
  Sex: Male
  Weight: 68.027 kg

DRUGS (4)
  1. ROBITUSSIN PEAK COLD COUGH PLUS CHEST CONGESTION DM [Suspect]
     Indication: COUGH
     Dosage: UNK
     Dates: start: 20111101, end: 20110101
  2. ROBITUSSIN PEAK COLD COUGH PLUS CHEST CONGESTION DM [Suspect]
     Indication: NASAL CONGESTION
  3. SIMVASTATIN [Concomitant]
     Indication: BLOOD CHOLESTEROL ABNORMAL
     Dosage: 10 MG, DAILY
  4. LISINOPRIL AND HYDROCHLOROTHIAZIDE [Concomitant]
     Indication: HYPERTENSION
     Dosage: 40/25 MG, DAILY

REACTIONS (7)
  - WEIGHT DECREASED [None]
  - SYNCOPE [None]
  - INSOMNIA [None]
  - DIZZINESS [None]
  - ANGINA PECTORIS [None]
  - HYPERTENSION [None]
  - MALAISE [None]
